FAERS Safety Report 5484160-X (Version None)
Quarter: 2007Q4

REPORT INFORMATION
  Report Type: 
  Country: None (occurrence: None)
  Receive Date: 20071012
  Receipt Date: 20070730
  Transmission Date: 20080405
  Serious: No
  Sender: FDA-Public Use
  Company Number: US-ASTRAZENECA-2007UW18403

PATIENT
  Sex: Female

DRUGS (3)
  1. SYMBICORT [Suspect]
     Indication: ASTHMA
     Dosage: 160/4.5 MCG
     Route: 055
  2. PULMICORT FLEXHALER [Concomitant]
     Indication: ASTHMA
     Route: 055
  3. FORADIL [Concomitant]
     Indication: ASTHMA

REACTIONS (2)
  - DYSPHONIA [None]
  - SENSATION OF FOREIGN BODY [None]
